FAERS Safety Report 4420599-9 (Version None)
Quarter: 2004Q3

REPORT INFORMATION
  Report Type: 
  Country: None (occurrence: None)
  Receive Date: 20040806
  Receipt Date: 20040806
  Transmission Date: 20050211
  Serious: Yes (Other)
  Sender: FDA-Public Use
  Company Number: None

PATIENT
  Age: 44 Year
  Sex: Female
  Weight: 104.3273 kg

DRUGS (3)
  1. COPPERTONE ENDLESS SUMMER SPF 45 LOTION [Suspect]
     Indication: PROPHYLAXIS
     Dosage: APPLIED ONCE DAILY
     Dates: start: 20040725, end: 20040727
  2. COPPERTONE ENDLESS SUMMER SPF 45 LOTION [Suspect]
     Indication: SUNBURN
     Dosage: APPLIED ONCE DAILY
     Dates: start: 20040725, end: 20040727
  3. IBUPROFEN [Concomitant]

REACTIONS (3)
  - APPLICATION SITE DERMATITIS [None]
  - HEAT RASH [None]
  - RASH ERYTHEMATOUS [None]
